FAERS Safety Report 16726510 (Version 1)
Quarter: 2019Q3

REPORT INFORMATION
  Report Type: Spontaneous
  Country: US (occurrence: US)
  Receive Date: 20190821
  Receipt Date: 20190821
  Transmission Date: 20191005
  Serious: No
  Sender: FDA-Public Use
  Company Number: US-BRISTOL-MYERS SQUIBB COMPANY-BMS-2019-077490

PATIENT
  Sex: Female
  Weight: 74.84 kg

DRUGS (2)
  1. VITAMIN D NOS [Concomitant]
     Active Substance: VITAMIN D NOS
     Indication: PRODUCT USED FOR UNKNOWN INDICATION
     Dosage: UNK
     Route: 065
  2. COUMADIN [Suspect]
     Active Substance: WARFARIN SODIUM
     Indication: PRODUCT USED FOR UNKNOWN INDICATION
     Dosage: UNK
     Route: 065

REACTIONS (7)
  - Asthenia [Unknown]
  - Heart rate increased [Unknown]
  - Epistaxis [Unknown]
  - Hypotension [Unknown]
  - Dyspnoea [Unknown]
  - Fatigue [Unknown]
  - Joint swelling [Unknown]
